FAERS Safety Report 6047238-8 (Version None)
Quarter: 2009Q1

REPORT INFORMATION
  Report Type: 
  Country: None (occurrence: None)
  Receive Date: 20090121
  Receipt Date: 20080711
  Transmission Date: 20090719
  Serious: No
  Sender: FDA-Public Use
  Company Number: A-US2007-17513

PATIENT
  Age: 62 Year
  Sex: Female

DRUGS (10)
  1. TRACLEER [Suspect]
     Indication: PULMONARY HYPERTENSION
     Dosage: 125 MG, BID, ORAL
     Route: 048
     Dates: start: 20020401
  2. COUMADIN [Concomitant]
  3. SILDENAFIL TABLET [Concomitant]
  4. DIGOXIN (BETA-ACETYLDIGOXIN) [Concomitant]
  5. LASIX [Concomitant]
  6. ALDACTONE [Concomitant]
  7. TEMAZEPAM [Concomitant]
  8. XANAX [Concomitant]
  9. LEXAPRO [Concomitant]
  10. PRILOSEC [Concomitant]

REACTIONS (3)
  - DYSPNOEA [None]
  - INTERNATIONAL NORMALISED RATIO ABNORMAL [None]
  - SKIN DISCOLOURATION [None]
